FAERS Safety Report 26202450 (Version 1)
Quarter: 2025Q4

REPORT INFORMATION
  Report Type: Other
  Country: CN (occurrence: CN)
  Receive Date: 20251226
  Receipt Date: 20251226
  Transmission Date: 20260117
  Serious: Yes (Hospitalization, Other)
  Sender: NOVITIUM PHARMA
  Company Number: CN-NOVITIUM PHARMA-000436

PATIENT
  Age: 57 Year
  Sex: Female

DRUGS (1)
  1. CHLORZOXAZONE [Suspect]
     Active Substance: CHLORZOXAZONE
     Indication: Product used for unknown indication
     Dosage: FORMULATION: PREPARATION

REACTIONS (4)
  - Haemolytic uraemic syndrome [Recovered/Resolved]
  - Cognitive disorder [Recovered/Resolved]
  - Psychomotor retardation [Recovered/Resolved]
  - Tremor [Recovered/Resolved]
